FAERS Safety Report 25879045 (Version 2)
Quarter: 2025Q4

REPORT INFORMATION
  Report Type: Report from Study
  Country: US (occurrence: None)
  Receive Date: 20251003
  Receipt Date: 20251022
  Transmission Date: 20260118
  Serious: Yes (Other)
  Sender: UCB
  Company Number: US-UCBSA-2025061478

PATIENT
  Age: 21 Year
  Weight: 81 kg

DRUGS (1)
  1. FENFLURAMINE HYDROCHLORIDE [Suspect]
     Active Substance: FENFLURAMINE HYDROCHLORIDE
     Indication: Product used for unknown indication
     Dosage: 17.6 MILLIGRAM PER DAY, 0.21 MG/KG/DAY

REACTIONS (2)
  - Mitral valve incompetence [Not Recovered/Not Resolved]
  - Left atrial enlargement [Not Recovered/Not Resolved]
